FAERS Safety Report 9753523 (Version 2)
Quarter: 2013Q4

REPORT INFORMATION
  Report Type: Report from Study
  Country: CA (occurrence: CA)
  Receive Date: 20131213
  Receipt Date: 20131227
  Transmission Date: 20140711
  Serious: Yes (Other)
  Sender: FDA-Public Use
  Company Number: CA-ABBVIE-13P-028-1178102-00

PATIENT
  Sex: Female
  Weight: 123.94 kg

DRUGS (1)
  1. HUMIRA [Suspect]
     Indication: CROHN^S DISEASE
     Route: 058
     Dates: start: 20101217, end: 201209

REACTIONS (2)
  - Intestinal stenosis [Unknown]
  - Abdominal hernia [Unknown]
